FAERS Safety Report 9527124 (Version 3)
Quarter: 2014Q2

REPORT INFORMATION
  Report Type: Spontaneous
  Country: US (occurrence: US)
  Receive Date: 20130916
  Receipt Date: 20140502
  Transmission Date: 20141212
  Serious: Yes (Hospitalization)
  Sender: FDA-Public Use
  Company Number: US-B.I. PHARMACEUTICALS,INC./RIDGEFIELD-2013-BI-28570BP

PATIENT
  Age: 76 Year
  Sex: Male
  Weight: 116 kg

DRUGS (10)
  1. PRADAXA [Suspect]
     Indication: ATRIAL FIBRILLATION
     Dosage: 300 MG
     Route: 065
     Dates: start: 201109, end: 20111226
  2. GLIPIZIDE [Concomitant]
     Dosage: 10 MG
     Route: 065
     Dates: start: 2010
  3. TRIAMCINOLONE [Concomitant]
     Route: 065
  4. AMOX TRK CLV [Concomitant]
     Route: 065
  5. FLOMAX [Concomitant]
     Dosage: 0.4 MG
     Route: 065
  6. LASIX [Concomitant]
     Dosage: 40 MG
     Route: 065
  7. ALDACTINE [Concomitant]
     Dosage: 25 MG
     Route: 065
  8. CRESTOR [Concomitant]
     Dosage: 10 MG
     Route: 065
  9. LISINOPRIL [Concomitant]
     Dosage: 10 MG
     Route: 065
  10. ASPIRIN [Concomitant]
     Dosage: 81 MG
     Route: 065

REACTIONS (4)
  - Gastrointestinal haemorrhage [Unknown]
  - Haemorrhagic anaemia [Unknown]
  - Acute myocardial infarction [Unknown]
  - Normal pressure hydrocephalus [Unknown]
